FAERS Safety Report 13505083 (Version 1)
Quarter: 2017Q2

REPORT INFORMATION
  Report Type: Spontaneous
  Country: US (occurrence: US)
  Receive Date: 20170502
  Receipt Date: 20170502
  Transmission Date: 20170830
  Serious: Yes (Death, Hospitalization, Other)
  Sender: FDA-Public Use
  Company Number: US-TARO-2016TAR00546

PATIENT
  Age: 71 Year
  Sex: Male

DRUGS (1)
  1. AMIODARONE [Suspect]
     Active Substance: AMIODARONE
     Indication: ATRIAL FIBRILLATION
     Dosage: 200 MG, UNK
     Dates: start: 201310, end: 201404

REACTIONS (15)
  - Restlessness [Unknown]
  - Off label use [Fatal]
  - Acute respiratory failure [Unknown]
  - Wheezing [Unknown]
  - Dyspnoea [Fatal]
  - Cough [Unknown]
  - Asthenia [Unknown]
  - Depression [Unknown]
  - Chronic respiratory failure [Fatal]
  - Nervousness [Unknown]
  - Toxicity to various agents [Fatal]
  - Fatigue [Unknown]
  - Disturbance in attention [Unknown]
  - Pulmonary fibrosis [Fatal]
  - Irritability [Unknown]

NARRATIVE: CASE EVENT DATE: 2014
